FAERS Safety Report 8337370-8 (Version None)
Quarter: 2012Q2

REPORT INFORMATION
  Report Type: 
  Country: None (occurrence: None)
  Receive Date: 20120504
  Receipt Date: 20120427
  Transmission Date: 20120825
  Serious: Yes (Other)
  Sender: FDA-Public Use
  Company Number: US-ROCHE-1013817

PATIENT
  Sex: Female

DRUGS (4)
  1. PEGASYS [Suspect]
     Dates: start: 20110914
  2. RIBAVIRIN [Suspect]
     Indication: HEPATITIS C
     Dates: start: 20110713
  3. PEGASYS [Suspect]
     Indication: HEPATITIS C
     Dosage: 135 MG 1 PER 1 WEEK.
     Dates: start: 20110713
  4. CITALOPRAM HYDROBROMIDE [Concomitant]

REACTIONS (11)
  - WEIGHT DECREASED [None]
  - ABDOMINAL MASS [None]
  - VISUAL IMPAIRMENT [None]
  - POLYMENORRHOEA [None]
  - DECREASED APPETITE [None]
  - MENSTRUATION IRREGULAR [None]
  - PLATELET COUNT DECREASED [None]
  - VOMITING [None]
  - HYPOMENORRHOEA [None]
  - DENTAL CARIES [None]
  - NAUSEA [None]
